FAERS Safety Report 6506273-3 (Version None)
Quarter: 2009Q4

REPORT INFORMATION
  Report Type: 
  Country: None (occurrence: None)
  Receive Date: 20091216
  Receipt Date: 20091203
  Transmission Date: 20100525
  Serious: Yes (Other)
  Sender: FDA-Public Use
  Company Number: CERZ-1001068

PATIENT
  Age: 7 Year
  Sex: Male

DRUGS (3)
  1. CEREZYME [Suspect]
     Indication: GAUCHER'S DISEASE
  2. CHLORPHENIRAMINE MALEATE [Concomitant]
  3. METHYLPREDNISOLONE [Concomitant]

REACTIONS (9)
  - ANAPHYLACTIC REACTION [None]
  - COUGH [None]
  - DRUG INEFFECTIVE [None]
  - DYSPNOEA [None]
  - INFUSION SITE SWELLING [None]
  - PRURITUS [None]
  - TACHYCARDIA [None]
  - URTICARIA [None]
  - WHEEZING [None]
